FAERS Safety Report 5533526-8 (Version None)
Quarter: 2007Q4

REPORT INFORMATION
  Report Type: 
  Country: None (occurrence: None)
  Receive Date: 20071204
  Receipt Date: 20071128
  Transmission Date: 20080405
  Serious: Yes (Hospitalization)
  Sender: FDA-Public Use
  Company Number: FR-ELI_LILLY_AND_COMPANY-FR200709005711

PATIENT
  Age: 75 Year
  Sex: Female

DRUGS (5)
  1. FORTEO [Suspect]
     Indication: OSTEOPOROSIS
     Dosage: 20 UG, DAILY (1/D)
     Route: 058
     Dates: start: 20070625
  2. OMEPRAZOLE [Concomitant]
  3. TAHOR [Concomitant]
     Indication: HYPERCHOLESTEROLAEMIA
  4. PROPRANOLOL [Concomitant]
     Indication: HYPERTENSION
  5. IXEL [Concomitant]
     Indication: DEPRESSION

REACTIONS (3)
  - CONSTIPATION [None]
  - DIZZINESS [None]
  - INTESTINAL POLYP [None]
